FAERS Safety Report 4863279-8 (Version None)
Quarter: 2005Q4

REPORT INFORMATION
  Report Type: 
  Country: None (occurrence: None)
  Receive Date: 20051222
  Receipt Date: 20051213
  Transmission Date: 20060501
  Serious: Yes (Death, Hospitalization)
  Sender: FDA-Public Use
  Company Number: SE-JNJFOC-20030904697

PATIENT
  Age: 64 Year
  Sex: Female

DRUGS (14)
  1. REMICADE [Suspect]
     Indication: RHEUMATOID ARTHRITIS
     Route: 042
  2. METOPROLOL SUCCINATE [Concomitant]
     Route: 048
  3. LANACRIST [Concomitant]
     Route: 048
  4. WARAN [Concomitant]
     Route: 048
  5. IMUREL [Concomitant]
     Route: 048
  6. MIDAMOR [Concomitant]
     Route: 048
  7. PREDNISOLONE [Concomitant]
     Route: 048
  8. GLIBENCLAMIDE [Concomitant]
     Route: 048
  9. FUROSEMIDE [Concomitant]
     Route: 048
  10. ISOPTIN [Concomitant]
     Route: 048
  11. CALCICHEW D3 [Concomitant]
     Route: 048
  12. AVANDIA [Concomitant]
     Route: 048
  13. SALAZOPYRIN [Concomitant]
     Route: 065
  14. HYDROXYCHLOROQUIN [Concomitant]
     Route: 065

REACTIONS (3)
  - ALVEOLITIS FIBROSING [None]
  - LUNG INFECTION [None]
  - PNEUMONITIS [None]
